FAERS Safety Report 13800712 (Version 1)
Quarter: 2017Q3

REPORT INFORMATION
  Report Type: Spontaneous
  Country: GB (occurrence: GB)
  Receive Date: 20170727
  Receipt Date: 20170727
  Transmission Date: 20171127
  Serious: Yes (Other)
  Sender: FDA-Public Use
  Company Number: GB-PFIZER INC-2017321537

PATIENT
  Age: 56 Year
  Sex: Male

DRUGS (1)
  1. EPANUTIN [Suspect]
     Active Substance: PHENYTOIN SODIUM
     Dosage: 500 MG, 1X/DAY EVERY NIGHT
     Dates: start: 201706

REACTIONS (2)
  - Expired product administered [Unknown]
  - Seizure [Unknown]
